FAERS Safety Report 9343629 (Version 3)
Quarter: 2013Q4

REPORT INFORMATION
  Report Type: Spontaneous
  Country: GB (occurrence: None)
  Receive Date: 20130610
  Receipt Date: 20131023
  Transmission Date: 20140711
  Serious: Yes (Other)
  Sender: FDA-Public Use
  Company Number: AUR-APL-2013-04638

PATIENT
  Age: 41 Year
  Sex: Male

DRUGS (1)
  1. RISPERIDONE [Suspect]
     Indication: PSYCHOTIC DISORDER
     Dosage: 8MG (4 MG,2 IN 1 D),ORAL
     Route: 048
     Dates: start: 20130412

REACTIONS (4)
  - Immobile [None]
  - Accidental overdose [None]
  - Extrapyramidal disorder [None]
  - Deep vein thrombosis [None]
